FAERS Safety Report 4391659-6 (Version None)
Quarter: 2004Q3

REPORT INFORMATION
  Report Type: 
  Country: None (occurrence: None)
  Receive Date: 20040702
  Receipt Date: 20040427
  Transmission Date: 20050211
  Serious: Yes (Other)
  Sender: FDA-Public Use
  Company Number: 2004UW08587

PATIENT
  Age: 66 Year
  Sex: Female

DRUGS (3)
  1. CRESTOR [Suspect]
     Dosage: 10 MG QOD
     Dates: start: 20040123, end: 20040319
  2. CRESTOR [Suspect]
     Dosage: 10 MG DAILY
     Dates: start: 20040319, end: 20040423
  3. CRESTOR [Suspect]
     Dosage: 10 MG QD
     Dates: start: 20040423

REACTIONS (4)
  - ASTHENIA [None]
  - PAIN [None]
  - PYREXIA [None]
  - RASH [None]
